FAERS Safety Report 25690496 (Version 1)
Quarter: 2025Q3

REPORT INFORMATION
  Report Type: Spontaneous
  Country: US (occurrence: None)
  Receive Date: 20250815
  Receipt Date: 20250815
  Transmission Date: 20251020
  Serious: Yes (Hospitalization)
  Sender: FDA-CTU
  Company Number: None

PATIENT
  Age: 73 Year
  Sex: Female

DRUGS (1)
  1. CYANOCOBALAMIN\SEMAGLUTIDE [Suspect]
     Active Substance: CYANOCOBALAMIN\SEMAGLUTIDE
     Indication: Weight control
     Dosage: FREQUENCY : WEEKLY;?
     Route: 058

REACTIONS (4)
  - Dyspnoea [None]
  - Syncope [None]
  - Memory impairment [None]
  - Therapy interrupted [None]

NARRATIVE: CASE EVENT DATE: 20241010
